FAERS Safety Report 23498841 (Version 3)
Quarter: 2025Q4

REPORT INFORMATION
  Report Type: Report from Study
  Country: US (occurrence: US)
  Receive Date: 20240208
  Receipt Date: 20251125
  Transmission Date: 20260118
  Serious: Yes (Other)
  Sender: ABBVIE
  Company Number: US-ABBVIE-5621921

PATIENT
  Sex: Male

DRUGS (1)
  1. RINVOQ [Suspect]
     Active Substance: UPADACITINIB
     Indication: Rheumatoid arthritis
     Route: 048
     Dates: start: 20231101

REACTIONS (17)
  - Spinal operation [Unknown]
  - Pain in extremity [Not Recovered/Not Resolved]
  - Herpes zoster [Unknown]
  - Arthralgia [Not Recovered/Not Resolved]
  - Abdominal pain upper [Recovering/Resolving]
  - Foot deformity [Not Recovered/Not Resolved]
  - Anaemia [Unknown]
  - Trigger finger [Unknown]
  - Intervertebral disc operation [Unknown]
  - Hypotonia [Unknown]
  - Movement disorder [Unknown]
  - Arthropathy [Unknown]
  - Joint swelling [Not Recovered/Not Resolved]
  - Weight decreased [Recovering/Resolving]
  - Rheumatoid nodule [Unknown]
  - Hypoaesthesia [Not Recovered/Not Resolved]
  - Hypophagia [Recovering/Resolving]
